FAERS Safety Report 8586902-3 (Version None)
Quarter: 2012Q3

REPORT INFORMATION
  Report Type: 
  Country: None (occurrence: None)
  Receive Date: 20120810
  Receipt Date: 20120730
  Transmission Date: 20120928
  Serious: Yes (Other)
  Sender: FDA-Public Use
  Company Number: CHPA2012US017241

PATIENT
  Age: 62 Year
  Sex: Male

DRUGS (1)
  1. GAS-X ULTRA STRENGTH [Suspect]
     Indication: FLATULENCE
     Dosage: 2 DF
     Route: 048

REACTIONS (1)
  - PALPITATIONS [None]
